FAERS Safety Report 4282986-1 (Version None)
Quarter: 2004Q1

REPORT INFORMATION
  Report Type: 
  Country: None (occurrence: None)
  Receive Date: 20040129
  Receipt Date: 20040116
  Transmission Date: 20041129
  Serious: Yes (Hospitalization)
  Sender: FDA-Public Use
  Company Number: US-JNJFOC-20040103367

PATIENT
  Age: 45 Year
  Sex: Female

DRUGS (2)
  1. DURAGESIC [Suspect]
     Indication: PAIN
     Dosage: 50 + 100 UG/HR, 1 IN 72 HOUR, TRANDERMAL
     Route: 062
     Dates: start: 20040101, end: 20040108
  2. DURAGESIC [Suspect]
     Indication: PAIN
     Dosage: 50 + 100 UG/HR, 1 IN 72 HOUR, TRANDERMAL
     Route: 062
     Dates: start: 20040108

REACTIONS (3)
  - CONSTIPATION [None]
  - FAECALOMA [None]
  - PHARMACEUTICAL PRODUCT COMPLAINT [None]
